FAERS Safety Report 23427228 (Version 1)
Quarter: 2024Q1

REPORT INFORMATION
  Report Type: Spontaneous
  Country: None (occurrence: FR)
  Receive Date: 20240122
  Receipt Date: 20240122
  Transmission Date: 20240410
  Serious: Yes (Life-Threatening)
  Sender: FDA-Public Use
  Company Number: FR-B.Braun Medical Inc.-2151735

PATIENT
  Age: 69 Year
  Sex: Female
  Weight: 77 kg

DRUGS (9)
  1. ACETAMINOPHEN [Suspect]
     Active Substance: ACETAMINOPHEN
     Indication: Pain
     Route: 048
  2. ALLOPURINOL [Suspect]
     Active Substance: ALLOPURINOL
  3. AMIKACIN [Suspect]
     Active Substance: AMIKACIN
  4. CEFTRIAXONE [Suspect]
     Active Substance: CEFTRIAXONE\CEFTRIAXONE SODIUM
  5. METOCLOPRAMIDE [Suspect]
     Active Substance: METOCLOPRAMIDE
  6. ONDANSETRON [Suspect]
     Active Substance: ONDANSETRON
  7. POSACONAZOLE [Suspect]
     Active Substance: POSACONAZOLE
  8. VALACYCLOVIR HYDROCHLORIDE [Suspect]
     Active Substance: VALACYCLOVIR HYDROCHLORIDE
  9. VYXEOS [Suspect]
     Active Substance: CYTARABINE\DAUNORUBICIN

REACTIONS (4)
  - Acute respiratory distress syndrome [None]
  - Acute pulmonary oedema [None]
  - Septic shock [None]
  - Off label use [None]
